FAERS Safety Report 10768476 (Version 1)
Quarter: 2015Q1

REPORT INFORMATION
  Report Type: Spontaneous
  Country: US (occurrence: US)
  Receive Date: 20150206
  Receipt Date: 20150206
  Transmission Date: 20150721
  Serious: Yes (Death, Hospitalization)
  Sender: FDA-Public Use
  Company Number: US-EUSA PHARMA-2014-US-016315

PATIENT
  Age: 67 Year
  Sex: Male
  Weight: 53 kg

DRUGS (27)
  1. ERWINAZE [Suspect]
     Active Substance: ASPARAGINASE ERWINIA CHRYSANTHEMI
     Dosage: 40000 IU, UNK
     Route: 042
     Dates: start: 20141112, end: 20141112
  2. ERWINAZE [Suspect]
     Active Substance: ASPARAGINASE ERWINIA CHRYSANTHEMI
     Dosage: 40000 IU, UNK
     Route: 042
     Dates: start: 20141119, end: 20141119
  3. FLUTICASONE [Concomitant]
     Active Substance: FLUTICASONE\FLUTICASONE PROPIONATE
     Indication: ALLERGY PROPHYLAXIS
     Dosage: 50 ?G, UNK
     Route: 045
     Dates: end: 20141211
  4. GLYCERYL GUAIACOLATE [Concomitant]
     Indication: COUGH
     Dosage: 300 MG, PRN
     Dates: start: 20141203, end: 20141211
  5. VORICONAZOLE. [Concomitant]
     Active Substance: VORICONAZOLE
     Indication: INFECTION PROPHYLAXIS
     Dosage: 200 MG, BID
     Dates: end: 20141211
  6. ERWINAZE [Suspect]
     Active Substance: ASPARAGINASE ERWINIA CHRYSANTHEMI
     Dosage: 40000 IU, UNK
     Route: 042
     Dates: start: 20141117, end: 20141117
  7. LISINOPRIL. [Concomitant]
     Active Substance: LISINOPRIL
     Indication: HYPERTENSION
     Dosage: 20 MG, QD
     Dates: end: 20141211
  8. COMPAZINE [Concomitant]
     Active Substance: PROCHLORPERAZINE MALEATE
     Indication: PROPHYLAXIS
     Dosage: 5 MG, PRN
     Dates: end: 20141211
  9. TYLENOL [Concomitant]
     Active Substance: ACETAMINOPHEN
     Indication: PYREXIA
     Dosage: 650 MG, PRN
     Dates: start: 20141203, end: 20141211
  10. PIPERACILLIN AND TAZOBACTAM [Concomitant]
     Active Substance: PIPERACILLIN SODIUM\TAZOBACTAM SODIUM
     Indication: COLITIS
     Dosage: 4.5 GM / Q6H
     Route: 042
     Dates: start: 20141203, end: 20141208
  11. FLAGYL [Concomitant]
     Active Substance: METRONIDAZOLE\METRONIDAZOLE HYDROCHLORIDE
     Indication: COLITIS
     Dosage: 500 MG, Q6H
     Route: 042
     Dates: start: 20141203, end: 20141207
  12. LEVAQUIN [Concomitant]
     Active Substance: LEVOFLOXACIN
     Indication: INFECTION PROPHYLAXIS
     Dosage: 750 MG, QD
     Dates: end: 20141211
  13. VANCOMYCIN HCL [Concomitant]
     Active Substance: VANCOMYCIN HYDROCHLORIDE
     Indication: CLOSTRIDIUM DIFFICILE COLITIS
     Dosage: 125 MG, QID
     Dates: start: 20141210, end: 20141211
  14. FLAGYL [Concomitant]
     Active Substance: METRONIDAZOLE\METRONIDAZOLE HYDROCHLORIDE
     Dosage: 500 MG, Q8H
     Route: 048
     Dates: start: 20141210, end: 20141211
  15. ERWINAZE [Suspect]
     Active Substance: ASPARAGINASE ERWINIA CHRYSANTHEMI
     Dosage: 40000 IU, UNK
     Route: 042
     Dates: start: 20141121, end: 20141121
  16. TRAMADOL [Concomitant]
     Active Substance: TRAMADOL
     Indication: MUSCULOSKELETAL PAIN
     Dosage: 50 MG, PRN
     Dates: end: 20141211
  17. ACYCLOVIR. [Concomitant]
     Active Substance: ACYCLOVIR
     Indication: INFECTION PROPHYLAXIS
     Dosage: 800 MG, BID
     Dates: end: 20141211
  18. CARVEDILOL. [Concomitant]
     Active Substance: CARVEDILOL
     Indication: HYPERTENSION
     Dosage: 12.5 MG, BID
     Dates: end: 20141211
  19. MEROPENEM. [Concomitant]
     Active Substance: MEROPENEM
     Indication: COLITIS
     Dosage: 1GM
     Route: 042
     Dates: start: 20141208, end: 20141210
  20. ERWINAZE [Suspect]
     Active Substance: ASPARAGINASE ERWINIA CHRYSANTHEMI
     Indication: ACUTE MYELOID LEUKAEMIA RECURRENT
     Dosage: 40000 IU, UNK
     Route: 042
     Dates: start: 20141110, end: 20141110
  21. ERWINAZE [Suspect]
     Active Substance: ASPARAGINASE ERWINIA CHRYSANTHEMI
     Dosage: 40000 IU, UNK
     Route: 042
     Dates: start: 20141114, end: 20141114
  22. PANTOPRAZOLE [Concomitant]
     Active Substance: PANTOPRAZOLE SODIUM
     Indication: PROPHYLAXIS
     Dosage: 40 MG, QD
     Dates: end: 20141211
  23. VANCOMYCIN HCL [Concomitant]
     Active Substance: VANCOMYCIN HYDROCHLORIDE
     Indication: COLITIS
     Dosage: 1 GM / Q12H
     Route: 042
     Dates: start: 20141208, end: 20141210
  24. DILAUDID [Concomitant]
     Active Substance: HYDROMORPHONE HYDROCHLORIDE
     Indication: ABDOMINAL PAIN
     Dosage: 0.5 MG, PRN
     Dates: start: 20141208, end: 20141210
  25. NYSTATIN. [Concomitant]
     Active Substance: NYSTATIN
     Indication: MUCOSAL INFLAMMATION
     Dosage: 10 ML, QID
     Dates: start: 20141203, end: 20141211
  26. FIDAXOMICIN [Concomitant]
     Active Substance: FIDAXOMICIN
     Indication: COLITIS
     Dosage: 200 MG, Q12H
     Route: 042
     Dates: start: 20141207, end: 20141210
  27. POTASSIUM CHLORIDE. [Concomitant]
     Active Substance: POTASSIUM CHLORIDE
     Indication: SUPPLEMENTATION THERAPY
     Dosage: 40 MEQ, QD
     Route: 048
     Dates: start: 20141203, end: 20141210

REACTIONS (4)
  - Acute myeloid leukaemia [Fatal]
  - Colitis [Not Recovered/Not Resolved]
  - Disease progression [Fatal]
  - Myelodysplastic syndrome [Fatal]

NARRATIVE: CASE EVENT DATE: 20121001
